FAERS Safety Report 11368089 (Version 1)
Quarter: 2015Q3

REPORT INFORMATION
  Report Type: Spontaneous
  Country: US (occurrence: None)
  Receive Date: 20150810
  Receipt Date: 20150810
  Transmission Date: 20151125
  Serious: Yes (Life-Threatening, Hospitalization, Other)
  Sender: FDA-Public Use
  Company Number: ADR-2015UNK159

PATIENT
  Age: 16 Year
  Sex: Female

DRUGS (3)
  1. CYCLOBENZAPRINE HCL [Suspect]
     Active Substance: CYCLOBENZAPRINE HYDROCHLORIDE
     Route: 048
  2. LEVETIRACETAM. [Concomitant]
     Active Substance: LEVETIRACETAM
  3. LACOSAMIDE [Concomitant]
     Active Substance: LACOSAMIDE

REACTIONS (5)
  - Ventricular tachycardia [None]
  - Intentional overdose [None]
  - Unresponsive to stimuli [None]
  - Sinus tachycardia [None]
  - Electrocardiogram QRS complex prolonged [None]
